FAERS Safety Report 21184823 (Version 1)
Quarter: 2022Q3

REPORT INFORMATION
  Report Type: Spontaneous
  Country: US (occurrence: None)
  Receive Date: 20220806
  Receipt Date: 20220806
  Transmission Date: 20221026
  Serious: Yes (Hospitalization)
  Sender: FDA-Public Use
  Company Number: None

PATIENT
  Age: 50 Year
  Sex: Female
  Weight: 36 kg

DRUGS (1)
  1. TOPOTECAN [Suspect]
     Active Substance: TOPOTECAN HYDROCHLORIDE

REACTIONS (5)
  - Haemoperitoneum [None]
  - Ileus [None]
  - Abdominal adhesions [None]
  - Ileostomy [None]
  - Intestinal obstruction [None]

NARRATIVE: CASE EVENT DATE: 20210422
